FAERS Safety Report 4711067-5 (Version None)
Quarter: 2005Q3

REPORT INFORMATION
  Report Type: 
  Country: None (occurrence: None)
  Receive Date: 20050708
  Receipt Date: 20050628
  Transmission Date: 20060218
  Serious: Yes (Hospitalization)
  Sender: FDA-Public Use
  Company Number: 2005093261

PATIENT
  Age: 52 Year
  Sex: Male

DRUGS (10)
  1. SOLU-MEDROL [Suspect]
     Indication: LIP AND/OR ORAL CAVITY CANCER
     Dosage: 80 MG, INTRAVENOUS
     Route: 042
     Dates: start: 20050214, end: 20050301
  2. SOLU-MEDROL [Suspect]
     Indication: PHARYNGEAL CANCER STAGE UNSPECIFIED
     Dosage: 80 MG, INTRAVENOUS
     Route: 042
     Dates: start: 20050214, end: 20050301
  3. METOCLOPRAMIDE [Suspect]
     Indication: NAUSEA
     Dosage: 1 DOSE FORM, ORAL
     Route: 048
     Dates: start: 20050308, end: 20050301
  4. METOCLOPRAMIDE [Suspect]
     Indication: VOMITING
     Dosage: 1 DOSE FORM, ORAL
     Route: 048
     Dates: start: 20050308, end: 20050301
  5. CISPLATIN [Suspect]
     Indication: LIP AND/OR ORAL CAVITY CANCER
     Dosage: 50 MG, INTRAVENOUS
     Route: 042
     Dates: start: 20050214, end: 20050301
  6. CISPLATIN [Suspect]
     Indication: PHARYNGEAL CANCER STAGE UNSPECIFIED
     Dosage: 50 MG, INTRAVENOUS
     Route: 042
     Dates: start: 20050214, end: 20050301
  7. ONDANSETRON HYDROCHLORIDE [Suspect]
     Indication: NAUSEA
     Dosage: 8 MG, ORAL
     Route: 048
     Dates: start: 20050214, end: 20050301
  8. ONDANSETRON HYDROCHLORIDE [Suspect]
     Indication: VOMITING
     Dosage: 8 MG, ORAL
     Route: 048
     Dates: start: 20050214, end: 20050301
  9. ETHYOL [Suspect]
     Indication: LIP AND/OR ORAL CAVITY CANCER
     Dosage: 400 MG, INTRAVENOUS
     Route: 042
     Dates: start: 20050214, end: 20050301
  10. ETHYOL [Suspect]
     Indication: PHARYNGEAL CANCER STAGE UNSPECIFIED
     Dosage: 400 MG, INTRAVENOUS
     Route: 042
     Dates: start: 20050214, end: 20050301

REACTIONS (1)
  - TOXIC EPIDERMAL NECROLYSIS [None]
